FAERS Safety Report 13569122 (Version 1)
Quarter: 2017Q2

REPORT INFORMATION
  Report Type: Spontaneous
  Country: CN (occurrence: CN)
  Receive Date: 20170522
  Receipt Date: 20170522
  Transmission Date: 20170830
  Serious: Yes (Other)
  Sender: FDA-Public Use
  Company Number: CN-NOVOPROD-544631

PATIENT
  Age: 43 Year
  Sex: Male
  Weight: 50 kg

DRUGS (1)
  1. NOVOMIX 50 PENFILL [Suspect]
     Active Substance: INSULIN ASPART
     Indication: PRODUCT USED FOR UNKNOWN INDICATION
     Dosage: 300 U, QD
     Route: 042
     Dates: start: 20170406

REACTIONS (8)
  - Incorrect route of drug administration [Unknown]
  - Suicide attempt [Unknown]
  - Contusion [Unknown]
  - Pain in extremity [Unknown]
  - Intentional overdose [Unknown]
  - Systemic scleroderma [Unknown]
  - Arthralgia [Unknown]
  - Product use issue [Unknown]

NARRATIVE: CASE EVENT DATE: 20170406
